FAERS Safety Report 8563148-6 (Version None)
Quarter: 2012Q3

REPORT INFORMATION
  Report Type: 
  Country: None (occurrence: None)
  Receive Date: 20120802
  Receipt Date: 20120724
  Transmission Date: 20120928
  Serious: No
  Sender: FDA-Public Use
  Company Number: US-AMGEN-USASP2012041562

PATIENT
  Age: 49 Year
  Sex: Male
  Weight: 75.737 kg

DRUGS (16)
  1. VITAMIN B-12 [Concomitant]
     Dosage: 2500 MUG, QD
     Route: 060
  2. ENBREL [Suspect]
     Indication: PSORIATIC ARTHROPATHY
     Dosage: 50 MG/ML, QWK
     Route: 058
     Dates: start: 20120514
  3. ADVAIR UNSPEC [Concomitant]
     Dosage: 250 MUG, BID
  4. PRILOSEC [Concomitant]
     Dosage: 20 MG, QD
     Route: 048
  5. HYDROCORTISONE [Concomitant]
     Dosage: 1% CREAM EXTERNAL, APPLY AFF AREA BID
  6. MULTIPLE VITAMINS [Concomitant]
     Dosage: UNK UNK, QD
     Route: 048
  7. PREDNISONE [Concomitant]
     Dosage: 5 MG, 1 TABLETS DAILY
     Route: 048
  8. PROVENTIL HFA                      /00139501/ [Concomitant]
     Dosage: UNK
  9. CRESTOR [Concomitant]
     Dosage: 10 MG, QD
  10. FOLIC ACID [Concomitant]
     Dosage: 1 MG, QD
     Route: 048
  11. BETAMETHASONE DIPROPIONATE [Concomitant]
     Dosage: 0.05% CREAM EXTERNAL, BID
  12. SINGULAIR [Concomitant]
     Dosage: 10 MG, QD
  13. MOBIC [Concomitant]
     Dosage: 15 MG, QD
     Route: 048
  14. METHOTREXATE [Concomitant]
     Dosage: 2.5 MG, QWK
     Route: 048
  15. CO Q 10 [Concomitant]
     Dosage: 100 MG, QD
     Route: 048
  16. ZOLPIDEM [Concomitant]
     Dosage: 10 MG, UNK

REACTIONS (5)
  - INJECTION SITE REACTION [None]
  - INJECTION SITE RASH [None]
  - INJECTION SITE ERYTHEMA [None]
  - INJECTION SITE PRURITUS [None]
  - INJECTION SITE WARMTH [None]
